FAERS Safety Report 5931835-1 (Version None)
Quarter: 2008Q4

REPORT INFORMATION
  Report Type: 
  Country: None (occurrence: None)
  Receive Date: 20081027
  Receipt Date: 20081017
  Transmission Date: 20090506
  Serious: Yes (Death)
  Sender: FDA-Public Use
  Company Number: KR-GENENTECH-269526

PATIENT
  Sex: Male

DRUGS (7)
  1. TRASTUZUMAB [Suspect]
     Indication: GASTRIC CANCER
     Dosage: 8 MG/KG, SINGLE
     Route: 042
     Dates: start: 20080813
  2. TRASTUZUMAB [Suspect]
     Dosage: 6 MG/KG, Q3W
     Dates: start: 20080904
  3. CISPLATIN [Concomitant]
     Indication: GASTRIC CANCER
     Dosage: 55 MG/M2, Q3W
     Route: 042
     Dates: start: 20080813
  4. CAPECITABINE [Concomitant]
     Indication: DRUG USE FOR UNKNOWN INDICATION
     Dosage: 1500 MG/M2, BID
     Route: 048
     Dates: start: 20080813
  5. ATACAND [Concomitant]
     Indication: DRUG USE FOR UNKNOWN INDICATION
     Dosage: UNK
  6. NUTRITIONAL SUPPLEMENT [Concomitant]
     Indication: DRUG USE FOR UNKNOWN INDICATION
     Dosage: UNK
  7. INTRAVENOUS FLUIDS (UNK INGREDIENTS) [Concomitant]
     Indication: DRUG USE FOR UNKNOWN INDICATION
     Dosage: UNK

REACTIONS (3)
  - BLOOD CREATININE INCREASED [None]
  - DEATH [None]
  - WEIGHT DECREASED [None]
